FAERS Safety Report 20492937 (Version 1)
Quarter: 2022Q1

REPORT INFORMATION
  Report Type: Spontaneous
  Country: US (occurrence: US)
  Receive Date: 20220219
  Receipt Date: 20220219
  Transmission Date: 20220424
  Serious: Yes (Other)
  Sender: FDA-Public Use
  Company Number: US-TEVA-2022-US-2007566

PATIENT
  Age: 81 Year
  Sex: Male

DRUGS (3)
  1. CARBAMAZEPINE [Suspect]
     Active Substance: CARBAMAZEPINE
     Route: 065
  2. CARBAMAZEPINE [Suspect]
     Active Substance: CARBAMAZEPINE
     Route: 065
  3. CARBAMAZEPINE [Suspect]
     Active Substance: CARBAMAZEPINE
     Route: 065

REACTIONS (7)
  - Seizure [Not Recovered/Not Resolved]
  - Intentional self-injury [Unknown]
  - Dysstasia [Not Recovered/Not Resolved]
  - Moaning [Not Recovered/Not Resolved]
  - Sneezing [Not Recovered/Not Resolved]
  - Product use in unapproved indication [Not Recovered/Not Resolved]
  - Computerised tomogram abnormal [Unknown]
